FAERS Safety Report 6520256-9 (Version None)
Quarter: 2009Q4

REPORT INFORMATION
  Report Type: 
  Country: None (occurrence: None)
  Receive Date: 20091229
  Receipt Date: 20091214
  Transmission Date: 20100525
  Serious: Yes (Life-Threatening)
  Sender: FDA-Public Use
  Company Number: FR-PFIZER INC-2009309355

PATIENT
  Sex: Female

DRUGS (1)
  1. CELEBREX [Suspect]
     Dosage: 1 DF, 1X/DAY
     Route: 048
     Dates: start: 20020101, end: 20020101

REACTIONS (1)
  - ANAPHYLACTIC SHOCK [None]
